FAERS Safety Report 9926724 (Version 1)
Quarter: 2014Q1

REPORT INFORMATION
  Report Type: Report from Study
  Country: CO (occurrence: CO)
  Receive Date: 20140226
  Receipt Date: 20140226
  Transmission Date: 20141002
  Serious: Yes (Hospitalization)
  Sender: FDA-Public Use
  Company Number: CO-ASTRAZENECA-2014SE12341

PATIENT
  Age: 19303 Day
  Sex: Male

DRUGS (6)
  1. BRILINTA [Suspect]
     Indication: INFARCTION
     Route: 048
     Dates: start: 20130719, end: 20131119
  2. BRILINTA [Suspect]
     Indication: INFARCTION
     Route: 048
     Dates: start: 20131119
  3. METOPROLOL [Concomitant]
  4. LOVASTATIN [Concomitant]
  5. ASA [Concomitant]
  6. ENALAPRIL [Concomitant]

REACTIONS (2)
  - Chest pain [Unknown]
  - Intentional drug misuse [Not Recovered/Not Resolved]
